FAERS Safety Report 18690411 (Version 1)
Quarter: 2021Q1

REPORT INFORMATION
  Report Type: Other
  Country: BE (occurrence: BE)
  Receive Date: 20210101
  Receipt Date: 20210101
  Transmission Date: 20210419
  Serious: No
  Sender: FDA-Public Use
  Company Number: BE-ROCHE-2741984

PATIENT
  Age: 28 Year
  Sex: Female
  Weight: 66 kg

DRUGS (11)
  1. PANTOMED (BELGIUM) [Concomitant]
     Active Substance: PANTOPRAZOLE SODIUM
     Indication: PREMEDICATION
     Route: 048
     Dates: start: 20200630, end: 20200630
  2. PANTOMED (BELGIUM) [Concomitant]
     Active Substance: PANTOPRAZOLE SODIUM
     Route: 048
     Dates: start: 20201022, end: 20201022
  3. SOLU?MEDROL [Concomitant]
     Active Substance: METHYLPREDNISOLONE SODIUM SUCCINATE
     Indication: PREMEDICATION
     Route: 042
     Dates: start: 20200630, end: 20200630
  4. PARACETAMOL FRESENIUS [Concomitant]
     Indication: PREMEDICATION
     Route: 042
     Dates: start: 20200630, end: 20200630
  5. SOLU?MEDROL [Concomitant]
     Active Substance: METHYLPREDNISOLONE SODIUM SUCCINATE
     Route: 042
     Dates: start: 20201022, end: 20201022
  6. OCRELIZUMAB. [Suspect]
     Active Substance: OCRELIZUMAB
     Indication: MULTIPLE SCLEROSIS
     Dosage: VISIT 2?300 MG/250 ML
     Route: 042
     Dates: start: 20200630, end: 20200630
  7. OCRELIZUMAB. [Suspect]
     Active Substance: OCRELIZUMAB
     Dosage: VISIT 4?300 MG/250 ML
     Route: 042
     Dates: start: 20201022, end: 20201022
  8. CETIRIZINE [Concomitant]
     Active Substance: CETIRIZINE HYDROCHLORIDE
     Route: 048
     Dates: start: 20201022, end: 20201022
  9. PARACETAMOL FRESENIUS [Concomitant]
     Route: 042
     Dates: start: 20201022, end: 20201022
  10. CETIRIZINE [Concomitant]
     Active Substance: CETIRIZINE HYDROCHLORIDE
     Indication: PREMEDICATION
     Route: 048
     Dates: start: 20200630, end: 20200630
  11. D?CURE [Concomitant]
     Active Substance: CHOLECALCIFEROL
     Indication: VITAMIN D DEFICIENCY
     Dosage: 1 AMPULE
     Route: 048
     Dates: start: 201412

REACTIONS (1)
  - COVID-19 [Not Recovered/Not Resolved]

NARRATIVE: CASE EVENT DATE: 20201227
